FAERS Safety Report 19568818 (Version 5)
Quarter: 2021Q4

REPORT INFORMATION
  Report Type: Report from Study
  Country: PL (occurrence: None)
  Receive Date: 20210715
  Receipt Date: 20211101
  Transmission Date: 20220303
  Serious: Yes (Hospitalization)
  Sender: FDA-Public Use
  Company Number: PL-ROCHE-2868633

PATIENT
  Age: 63 Year
  Sex: Male
  Weight: 79.5 kg

DRUGS (15)
  1. ATEZOLIZUMAB [Suspect]
     Active Substance: ATEZOLIZUMAB
     Indication: Renal cell carcinoma
     Dosage: ON 29/JUN/2021, HE RECEIVED MOST RECENT DOSE OF ATEZOLIZUMAB (1200 MG) PRIOR TO ONSET OF SERIOUS ADV
     Route: 041
     Dates: start: 20210607
  2. CABOZANTINIB [Suspect]
     Active Substance: CABOZANTINIB
     Indication: Renal cell carcinoma
     Dosage: ON 03/JUL/2021, HE RECEIVED MOST RECENT DOSE CABOZANTINIB (60 MG) PRIOR TO ONSET OF SERIOUS ADVERSE
     Route: 048
     Dates: start: 20210607
  3. NEBIVOLOL [Concomitant]
     Active Substance: NEBIVOLOL
     Indication: Hypertension
     Route: 048
     Dates: start: 2018
  4. RAMIPRILUM [Concomitant]
     Indication: Hypertension
     Route: 048
     Dates: start: 2018
  5. HEPARIN CALCIUM [Concomitant]
     Active Substance: HEPARIN CALCIUM
     Indication: Pulmonary embolism
     Dates: start: 202107
  6. CEFTRIAXONUM [Concomitant]
     Indication: Pulmonary embolism
     Dates: start: 202107
  7. ENOXAPARIN SODIUM [Concomitant]
     Active Substance: ENOXAPARIN SODIUM
     Indication: Gastrointestinal haemorrhage
     Route: 058
     Dates: start: 20210712
  8. PERINDOPRIL [Concomitant]
     Active Substance: PERINDOPRIL
     Indication: Gastrointestinal haemorrhage
     Route: 048
     Dates: start: 20210712
  9. BISOPROLOL [Concomitant]
     Active Substance: BISOPROLOL
     Indication: Gastrointestinal haemorrhage
     Route: 048
     Dates: start: 20210712
  10. INDAPAMIDE [Concomitant]
     Active Substance: INDAPAMIDE
     Indication: Gastrointestinal haemorrhage
     Route: 048
     Dates: start: 20210712
  11. OMEPRAZOLE [Concomitant]
     Active Substance: OMEPRAZOLE
     Indication: Gastrointestinal haemorrhage
     Dates: start: 202107, end: 202107
  12. ETHAMSYLATE [Concomitant]
     Active Substance: ETHAMSYLATE
     Indication: Gastrointestinal haemorrhage
     Dosage: 6 AMPULE
     Route: 042
     Dates: start: 202107, end: 202107
  13. ESOMEPRAZOLE MAGNESIUM [Concomitant]
     Active Substance: ESOMEPRAZOLE MAGNESIUM
     Route: 048
     Dates: start: 20210716
  14. XIFAXAN [Concomitant]
     Active Substance: RIFAXIMIN
     Route: 048
     Dates: start: 20210716
  15. TRIBUX FORTE [Concomitant]
     Route: 048
     Dates: start: 20210716

REACTIONS (2)
  - Pulmonary embolism [Not Recovered/Not Resolved]
  - Gastrointestinal haemorrhage [Recovered/Resolved]

NARRATIVE: CASE EVENT DATE: 20210702
